FAERS Safety Report 25000656 (Version 3)
Quarter: 2025Q2

REPORT INFORMATION
  Report Type: Spontaneous
  Country: US (occurrence: US)
  Receive Date: 20250222
  Receipt Date: 20250401
  Transmission Date: 20250716
  Serious: No
  Sender: BAYER
  Company Number: US-BAYER-2025A023981

PATIENT
  Age: 28 Year
  Sex: Female
  Weight: 88 kg

DRUGS (11)
  1. MIRENA [Suspect]
     Active Substance: LEVONORGESTREL
     Indication: Intrauterine contraception
     Dosage: 20?G/DAY
     Route: 015
     Dates: start: 20231213, end: 20250204
  2. ALBUTEROL [Concomitant]
     Active Substance: ALBUTEROL
     Route: 048
     Dates: start: 20230611
  3. Glide [Concomitant]
     Dates: start: 20240910
  4. FLUOXETINE [Concomitant]
     Active Substance: FLUOXETINE HYDROCHLORIDE
     Dosage: 1 DF, QD
     Route: 048
     Dates: start: 20250115
  5. HYDROXYZINE [Concomitant]
     Active Substance: HYDROXYZINE HYDROCHLORIDE
     Indication: Insomnia
     Dosage: 1 DF, QD
     Route: 048
     Dates: start: 20250128
  6. MONTELUKAST [Concomitant]
     Active Substance: MONTELUKAST
     Dosage: 1 DF, QD
     Route: 048
     Dates: start: 20250202
  7. ONDANSETRON [Concomitant]
     Active Substance: ONDANSETRON
     Dosage: 1 DF, Q8HR
     Route: 060
     Dates: start: 20241220
  8. Purelan [Concomitant]
     Route: 048
     Dates: start: 20241004
  9. SERTRALINE [Concomitant]
     Active Substance: SERTRALINE HYDROCHLORIDE
     Dosage: 1 DF, QD
     Route: 048
     Dates: start: 20241231
  10. TRAZODONE [Concomitant]
     Active Substance: TRAZODONE HYDROCHLORIDE
     Dates: start: 20241219
  11. ZEPBOUND [Concomitant]
     Active Substance: TIRZEPATIDE
     Dosage: 1 DF, OW
     Route: 058
     Dates: start: 20250129

REACTIONS (5)
  - Menstruation irregular [Recovered/Resolved]
  - Device expulsion [Recovered/Resolved]
  - Dyspareunia [None]
  - Micturition urgency [None]
  - Coital bleeding [Recovered/Resolved]

NARRATIVE: CASE EVENT DATE: 20250101
